FAERS Safety Report 7118834-1 (Version None)
Quarter: 2010Q4

REPORT INFORMATION
  Report Type: 
  Country: None (occurrence: None)
  Receive Date: 20101123
  Receipt Date: 20100802
  Transmission Date: 20110411
  Serious: No
  Sender: FDA-Public Use
  Company Number: US-KINGPHARMUSA00001-K201000958

PATIENT
  Sex: Female
  Weight: 70.295 kg

DRUGS (8)
  1. FLECTOR [Suspect]
     Indication: NEURALGIA
     Dosage: 1 PATCH, UNK
     Route: 061
     Dates: start: 20100721, end: 20100729
  2. FLECTOR [Suspect]
     Indication: BACK PAIN
  3. LIPITOR [Concomitant]
     Indication: BLOOD CHOLESTEROL INCREASED
     Dosage: 10 MG, QD
  4. PLAVIX [Concomitant]
     Indication: STENT PLACEMENT
     Dosage: UNK
  5. ACETYLSALICYLIC ACID [Concomitant]
     Indication: STENT PLACEMENT
     Dosage: UNK
  6. METOPROLOL [Concomitant]
     Indication: BLOOD PRESSURE
     Dosage: 12.5 (HALF OF 25 MG)
  7. AMBIEN [Concomitant]
     Indication: INSOMNIA
     Dosage: 10 MG, PRN QHS
  8. TEMAZEPAM [Concomitant]
     Indication: INSOMNIA
     Dosage: 30 MG, PRN QHS

REACTIONS (1)
  - APPLICATION SITE PAIN [None]
